FAERS Safety Report 10914807 (Version 2)
Quarter: 2015Q1

REPORT INFORMATION
  Report Type: Report from Study
  Country: IT (occurrence: IT)
  Receive Date: 20150313
  Receipt Date: 20150317
  Transmission Date: 20150721
  Serious: Yes (Death, Life-Threatening, Hospitalization, Disabling)
  Sender: FDA-Public Use
  Company Number: IT-CELGENE-ITA-2015030152

PATIENT
  Age: 54 Year
  Sex: Male
  Weight: 47 kg

DRUGS (16)
  1. ABRAXANE [Suspect]
     Active Substance: PACLITAXEL
     Indication: PANCREATIC CARCINOMA
     Dosage: 90 MILLIGRAM/SQ. METER
     Route: 041
     Dates: start: 20140206, end: 20140319
  2. IRINOTECAN [Suspect]
     Active Substance: IRINOTECAN
     Indication: PANCREATIC CARCINOMA
     Route: 041
     Dates: start: 20140206, end: 20140319
  3. FLUCONAZOLE. [Concomitant]
     Active Substance: FLUCONAZOLE
     Indication: MUCOSAL INFLAMMATION
     Route: 065
  4. CEFTRIAXONE. [Concomitant]
     Active Substance: CEFTRIAXONE
     Indication: PNEUMONITIS
  5. ANFOTERICINA [Concomitant]
     Indication: MUCOSAL INFLAMMATION
     Route: 065
  6. CALCIUM LEVOFOLINATE [Suspect]
     Active Substance: LEVOLEUCOVORIN CALCIUM
     Indication: PANCREATIC CARCINOMA
     Dosage: 25.7143 MILLIGRAM/SQ. METER
     Route: 041
     Dates: start: 20140206, end: 20140319
  7. ANTRA [Concomitant]
     Active Substance: OMEPRAZOLE
     Indication: MUCOSAL INFLAMMATION
     Route: 065
  8. CEFTRIAXONE. [Concomitant]
     Active Substance: CEFTRIAXONE
     Indication: NEUTROPENIA
     Route: 065
  9. TEVAGRASTIM [Concomitant]
     Active Substance: FILGRASTIM
     Indication: NEUTROPENIA
     Route: 065
  10. VANCOCINA [Concomitant]
     Indication: PNEUMONITIS
     Route: 065
  11. METOCLOPRAMIDE. [Concomitant]
     Active Substance: METOCLOPRAMIDE
     Indication: NAUSEA
     Route: 065
  12. MERREM [Concomitant]
     Active Substance: MEROPENEM
     Indication: PNEUMONITIS
     Route: 065
  13. DUROGESIC [Concomitant]
     Active Substance: FENTANYL
     Indication: PAIN
     Route: 065
  14. 5-FLUOROURACIL [Suspect]
     Active Substance: FLUOROURACIL
     Indication: PANCREATIC CARCINOMA
     Dosage: 57.1429 MILLIGRAM/SQ. METER
     Route: 041
     Dates: start: 20140206, end: 20140319
  15. 5-FLUOROURACIL [Suspect]
     Active Substance: FLUOROURACIL
     Route: 041
     Dates: start: 20140206, end: 20140321
  16. TRIMETOPRIM/SULFAMETOXAZOLE [Concomitant]
     Indication: PNEUMONITIS
     Route: 065

REACTIONS (5)
  - Mucosal inflammation [Fatal]
  - Hyponatraemia [Fatal]
  - Neutropenia [Fatal]
  - Pneumonitis [Fatal]
  - Thrombocytopenia [Fatal]

NARRATIVE: CASE EVENT DATE: 20140324
